FAERS Safety Report 12546217 (Version 2)
Quarter: 2016Q3

REPORT INFORMATION
  Report Type: Spontaneous
  Country: PT (occurrence: PT)
  Receive Date: 20160711
  Receipt Date: 20160727
  Transmission Date: 20161109
  Serious: Yes (Hospitalization, Other)
  Sender: FDA-Public Use
  Company Number: PT-GILEAD-2016-0222646

PATIENT
  Age: 70 Year
  Sex: Male

DRUGS (9)
  1. RISIDON [Concomitant]
     Active Substance: METFORMIN HYDROCHLORIDE
     Dosage: 1000 MG, QD
  2. MIXTARD                            /00806401/ [Concomitant]
     Dosage: 1 UNK, UNK
  3. FLUDEX                             /00340101/ [Concomitant]
     Active Substance: INDAPAMIDE
     Dosage: 1.5 MG, QD
  4. PLAVIX [Concomitant]
     Active Substance: CLOPIDOGREL BISULFATE
     Dosage: 75 MG, QD
  5. RANEXA [Suspect]
     Active Substance: RANOLAZINE
     Indication: ANGINA PECTORIS
     Dosage: 1500 MG, UNK
     Route: 048
     Dates: start: 20160514, end: 20160531
  6. CONCOR [Concomitant]
     Active Substance: BISOPROLOL FUMARATE
     Dosage: 2.5 MG, QD
  7. PERINDOPRIL [Concomitant]
     Active Substance: PERINDOPRIL
     Dosage: 5 MG, QD
  8. LEXOTAN [Concomitant]
     Active Substance: BROMAZEPAM
     Dosage: 1 DF, QD
  9. MONONITRATO DE ISOSSORBIDA [Concomitant]
     Dosage: 60 MG, QD

REACTIONS (1)
  - Hypersensitivity vasculitis [Recovering/Resolving]

NARRATIVE: CASE EVENT DATE: 20160530
